FAERS Safety Report 4943837-2 (Version None)
Quarter: 2006Q1

REPORT INFORMATION
  Report Type: 
  Country: None (occurrence: None)
  Receive Date: 20060310
  Receipt Date: 20060224
  Transmission Date: 20060701
  Serious: Yes (Other)
  Sender: FDA-Public Use
  Company Number: VNL_0056_2006

PATIENT
  Age: 47 Year
  Sex: Female

DRUGS (4)
  1. APO-GO [Suspect]
     Indication: PARKINSON'S DISEASE
     Dosage: 60 MG CON SC
     Route: 058
     Dates: end: 20060206
  2. APO-GO [Suspect]
     Indication: PARKINSON'S DISEASE
     Dates: start: 20060206
  3. MADOPAR CR [Concomitant]
  4. MADOPAR /00349201/ [Concomitant]

REACTIONS (4)
  - ABSCESS [None]
  - SEPSIS [None]
  - SKIN NODULE [None]
  - SKIN REACTION [None]
